FAERS Safety Report 21744908 (Version 3)
Quarter: 2023Q1

REPORT INFORMATION
  Report Type: Report from Study
  Country: US (occurrence: US)
  Receive Date: 20221219
  Receipt Date: 20230324
  Transmission Date: 20230417
  Serious: No
  Sender: FDA-Public Use
  Company Number: US-ABBVIE-4240993

PATIENT
  Age: 72 Year
  Sex: Female
  Weight: 69 kg

DRUGS (2)
  1. CREON [Suspect]
     Active Substance: PANCRELIPASE AMYLASE\PANCRELIPASE LIPASE\PANCRELIPASE PROTEASE
     Indication: Pancreatectomy
     Dosage: 4 CAPSULES, 3 TIMES A DAY
     Route: 048
     Dates: start: 2016, end: 202211
  2. CREON [Suspect]
     Active Substance: PANCRELIPASE AMYLASE\PANCRELIPASE LIPASE\PANCRELIPASE PROTEASE
     Indication: Pancreatectomy
     Route: 048
     Dates: start: 20161017

REACTIONS (5)
  - Abdominal pain upper [Not Recovered/Not Resolved]
  - Weight decreased [Unknown]
  - Weight increased [Unknown]
  - Abdominal distension [Unknown]
  - Gastric disorder [Unknown]

NARRATIVE: CASE EVENT DATE: 20221201
